FAERS Safety Report 5893557-5 (Version None)
Quarter: 2008Q3

REPORT INFORMATION
  Report Type: 
  Country: None (occurrence: None)
  Receive Date: 20080919
  Receipt Date: 20080903
  Transmission Date: 20090109
  Serious: Yes (Hospitalization)
  Sender: FDA-Public Use
  Company Number: ALA_00188_2008

PATIENT
  Age: 18 Year
  Sex: Male

DRUGS (5)
  1. OLSALAZINE (OLSALAZINE) [Suspect]
     Indication: COLITIS ULCERATIVE
     Dosage: (DF)
  2. PREDNISONE [Suspect]
     Indication: COLITIS ULCERATIVE
     Dosage: (DF), (40 MG QD), (10 MG QD), (DF)
  3. AZATHIOPRINE [Suspect]
     Indication: COLITIS ULCERATIVE
     Dosage: (1 MG/KG), (2 MG/KG)
  4. HEPARIN [Suspect]
     Indication: ANTICOAGULANT THERAPY
     Dosage: (5000 IU 1X), (DF INTRAVENOUS ())
     Route: 042
  5. WARFARIN SODIUM [Concomitant]

REACTIONS (14)
  - BENIGN INTRACRANIAL HYPERTENSION [None]
  - CEREBRAL VENOUS THROMBOSIS [None]
  - COLITIS [None]
  - DIARRHOEA HAEMORRHAGIC [None]
  - GENERAL PHYSICAL CONDITION ABNORMAL [None]
  - HEADACHE [None]
  - INTERNATIONAL NORMALISED RATIO INCREASED [None]
  - IRON DEFICIENCY ANAEMIA [None]
  - NAUSEA [None]
  - PAPILLOEDEMA [None]
  - PERITONSILLITIS [None]
  - UPPER RESPIRATORY TRACT INFECTION [None]
  - VOMITING [None]
  - WEIGHT DECREASED [None]
